FAERS Safety Report 18231639 (Version 2)
Quarter: 2020Q4

REPORT INFORMATION
  Report Type: Spontaneous
  Country: US (occurrence: US)
  Receive Date: 20200904
  Receipt Date: 20201106
  Transmission Date: 20210113
  Serious: No
  Sender: FDA-Public Use
  Company Number: US-ASTRAZENECA-2020SF11364

PATIENT
  Age: 548 Month
  Sex: Female

DRUGS (2)
  1. BYDUREON BCISE [Suspect]
     Active Substance: EXENATIDE
     Route: 058
     Dates: start: 20200812
  2. RESTASIS [Concomitant]
     Active Substance: CYCLOSPORINE
     Indication: EYE DISORDER

REACTIONS (4)
  - Dry eye [Unknown]
  - Vision blurred [Unknown]
  - Eye infection [Unknown]
  - Device leakage [Unknown]

NARRATIVE: CASE EVENT DATE: 202008
